FAERS Safety Report 4691990-0 (Version None)
Quarter: 2005Q2

REPORT INFORMATION
  Report Type: 
  Country: None (occurrence: None)
  Receive Date: 20050614
  Receipt Date: 20050607
  Transmission Date: 20051028
  Serious: Yes (Hospitalization)
  Sender: FDA-Public Use
  Company Number: 200511509BCC

PATIENT
  Age: 65 Year
  Sex: Male
  Weight: 68.9467 kg

DRUGS (1)
  1. ASPIRIN [Suspect]
     Dosage: 650 MG, TOTAL DAILY, ORAL
     Route: 048
     Dates: end: 20050306

REACTIONS (4)
  - CONTUSION [None]
  - FALL [None]
  - HAEMATOMA [None]
  - TREATMENT NONCOMPLIANCE [None]
